FAERS Safety Report 6676752-7 (Version None)
Quarter: 2010Q2

REPORT INFORMATION
  Report Type: 
  Country: None (occurrence: None)
  Receive Date: 20100412
  Receipt Date: 20100331
  Transmission Date: 20101027
  Serious: Yes (Hospitalization)
  Sender: FDA-Public Use
  Company Number: US-ROCHE-695063

PATIENT

DRUGS (10)
  1. BEVACIZUMAB [Suspect]
     Indication: BREAST CANCER
     Dosage: LAST DOSE PRIOR TO SAE: 04 FEBRUARY 2010
     Route: 065
     Dates: start: 20100121
  2. CYCLOPHOSPHAMIDE [Suspect]
     Dosage: LAST DOSE PRIOR TO SAE: 04 MARCH 2010.
     Route: 065
     Dates: start: 20100121
  3. DOCETAXEL [Suspect]
     Indication: BREAST CANCER
     Dosage: LAST DOSE PRIOR TO SAE: 04 MARCH 2010
     Route: 065
     Dates: start: 20100121
  4. BENADRYL [Concomitant]
  5. FEXOFENADINE [Concomitant]
  6. FLUTICASONE PROPIONATE [Concomitant]
  7. METAMUCIL-2 [Concomitant]
  8. EMEND [Concomitant]
  9. DECADRON [Concomitant]
  10. COMPAZINE [Concomitant]

REACTIONS (1)
  - ATRIAL TACHYCARDIA [None]
